FAERS Safety Report 6160946-3 (Version None)
Quarter: 2009Q2

REPORT INFORMATION
  Report Type: 
  Country: None (occurrence: None)
  Receive Date: 20090417
  Receipt Date: 20090417
  Transmission Date: 20091009
  Serious: Yes (Hospitalization)
  Sender: FDA-Public Use
  Company Number: None

PATIENT
  Age: 28 Year
  Sex: Female
  Weight: 77 kg

DRUGS (6)
  1. SEPTRA [Suspect]
     Indication: URINARY TRACT INFECTION
     Dosage: OTO PO
     Route: 049
     Dates: end: 20090414
  2. ALLEGRA [Concomitant]
  3. FISH OIL [Concomitant]
  4. MOBIC [Concomitant]
  5. NEURONTIN [Concomitant]
  6. PRILOSEC [Concomitant]

REACTIONS (2)
  - DRUG HYPERSENSITIVITY [None]
  - NO REACTION ON PREVIOUS EXPOSURE TO DRUG [None]
